FAERS Safety Report 8070410-2 (Version None)
Quarter: 2012Q1

REPORT INFORMATION
  Report Type: 
  Country: None (occurrence: None)
  Receive Date: 20120125
  Receipt Date: 20120116
  Transmission Date: 20120608
  Serious: Yes (Other)
  Sender: FDA-Public Use
  Company Number: HU-ROCHE-1032142

PATIENT

DRUGS (5)
  1. LEUCOVORIN CALCIUM [Suspect]
     Indication: COLORECTAL CANCER METASTATIC
     Route: 042
  2. AVASTIN [Suspect]
     Indication: COLORECTAL CANCER METASTATIC
     Route: 042
  3. FLUOROURACIL [Suspect]
     Indication: COLORECTAL CANCER METASTATIC
     Route: 040
  4. IRINOTECAN HYDROCHLORIDE [Suspect]
     Indication: COLORECTAL CANCER METASTATIC
     Route: 042
  5. FLUOROURACIL [Suspect]
     Route: 042

REACTIONS (11)
  - MUCOSAL INFLAMMATION [None]
  - DIARRHOEA [None]
  - HAEMOGLOBIN ABNORMAL [None]
  - EMBOLISM VENOUS [None]
  - HYPERTENSION [None]
  - NEUTROPENIA [None]
  - PROTEINURIA [None]
  - VOMITING [None]
  - FATIGUE [None]
  - RENAL IMPAIRMENT [None]
  - PALMAR-PLANTAR ERYTHRODYSAESTHESIA SYNDROME [None]
